FAERS Safety Report 13962923 (Version 1)
Quarter: 2017Q3

REPORT INFORMATION
  Report Type: Spontaneous
  Country: IT (occurrence: IT)
  Receive Date: 20170913
  Receipt Date: 20170913
  Transmission Date: 20171128
  Serious: Yes (Life-Threatening, Other)
  Sender: FDA-Public Use
  Company Number: IT-ACCORD-058189

PATIENT
  Age: 47 Year
  Sex: Female
  Weight: 107 kg

DRUGS (5)
  1. OXALIPLATIN. [Suspect]
     Active Substance: OXALIPLATIN
     Indication: ADENOCARCINOMA OF COLON
     Dates: start: 2014, end: 20170828
  2. FLUORO-URACILE MEDA [Concomitant]
     Indication: ADENOCARCINOMA OF COLON
     Route: 041
     Dates: start: 20170828, end: 20170828
  3. FOLINIC ACID [Suspect]
     Active Substance: LEUCOVORIN
     Indication: ADENOCARCINOMA OF COLON
     Dates: start: 2014
  4. FLUOROURACIL. [Suspect]
     Active Substance: FLUOROURACIL
     Indication: ADENOCARCINOMA OF COLON
     Dates: start: 2014
  5. BEVACIZUMAB. [Suspect]
     Active Substance: BEVACIZUMAB
     Indication: ADENOCARCINOMA OF COLON
     Dates: start: 2014

REACTIONS (7)
  - Back pain [Recovered/Resolved]
  - Hypersensitivity [Unknown]
  - Pain [Recovered/Resolved]
  - Hypertransaminasaemia [Unknown]
  - Pyrexia [Unknown]
  - Neutropenia [Unknown]
  - Chills [Unknown]

NARRATIVE: CASE EVENT DATE: 2014
